FAERS Safety Report 7113450-X (Version None)
Quarter: 2010Q4

REPORT INFORMATION
  Report Type: 
  Country: None (occurrence: None)
  Receive Date: 20101119
  Receipt Date: 20101108
  Transmission Date: 20110411
  Serious: Yes (Disabling)
  Sender: FDA-Public Use
  Company Number: CH-PFIZER INC-CH-WYE-G06799610

PATIENT
  Age: 55 Year
  Sex: Male
  Weight: 85 kg

DRUGS (4)
  1. EFFEXOR [Suspect]
     Dosage: DOSE INCREASED UP TO 300 MG DAILY IN NOV2008
     Route: 048
     Dates: start: 20080701
  2. EFFEXOR [Suspect]
     Dosage: 150 MG, 1X/DAY
     Route: 048
     Dates: start: 20100415, end: 20100707
  3. EFFEXOR [Suspect]
     Dosage: 75 MG, 1X/DAY
     Route: 048
     Dates: start: 20100708, end: 20100828
  4. EFFEXOR [Suspect]
     Dosage: 37.5 MG, 1X/DAY
     Route: 048
     Dates: start: 20100829, end: 20100905

REACTIONS (10)
  - AGITATION [None]
  - DEPERSONALISATION [None]
  - DIARRHOEA [None]
  - HALLUCINATION, AUDITORY [None]
  - HOT FLUSH [None]
  - HYPERHIDROSIS [None]
  - INSOMNIA [None]
  - MUSCLE TWITCHING [None]
  - PARAESTHESIA [None]
  - WITHDRAWAL SYNDROME [None]
